FAERS Safety Report 9819941 (Version 1)
Quarter: 2013Q4

REPORT INFORMATION
  Report Type: Spontaneous
  Country: US (occurrence: None)
  Receive Date: 20131223
  Receipt Date: 20131223
  Transmission Date: 20140711
  Serious: No
  Sender: FDA-Public Use
  Company Number: 218382

PATIENT
  Age: 55 Year
  Sex: Female

DRUGS (4)
  1. PICATO [Suspect]
     Indication: ACTINIC KERATOSIS
     Dates: start: 20120706
  2. EFFEXOR (VENLAFAXINE) [Concomitant]
  3. ANTIINFLAMMATORIES (ANTIINFLAMMATORY/ANTIRHEUMATIC AGENTS IN COMB) [Concomitant]
  4. HORMONE REPLACEMENT PILLS (HORMONES NOS) [Concomitant]

REACTIONS (3)
  - Application site erythema [None]
  - Application site dryness [None]
  - Application site exfoliation [None]
